FAERS Safety Report 18818975 (Version 2)
Quarter: 2021Q1

REPORT INFORMATION
  Report Type: Report from Study
  Country: None (occurrence: US)
  Receive Date: 20210202
  Receipt Date: 20210303
  Transmission Date: 20210419
  Serious: No
  Sender: FDA-Public Use
  Company Number: US-ABBVIE-21K-163-3753841-00

PATIENT
  Age: 79 Year
  Sex: Male
  Weight: 79 kg

DRUGS (10)
  1. PLAVIX [Concomitant]
     Active Substance: CLOPIDOGREL BISULFATE
     Indication: ANTICOAGULANT THERAPY
  2. SIMVASTATIN. [Concomitant]
     Active Substance: SIMVASTATIN
     Indication: PRODUCT USED FOR UNKNOWN INDICATION
  3. SOTALOL. [Concomitant]
     Active Substance: SOTALOL
     Indication: ATRIAL FIBRILLATION
  4. ULORIC [Concomitant]
     Active Substance: FEBUXOSTAT
     Indication: PRODUCT USED FOR UNKNOWN INDICATION
  5. VENCLEXTA [Suspect]
     Active Substance: VENETOCLAX
     Indication: CHRONIC LYMPHOCYTIC LEUKAEMIA
     Route: 048
     Dates: start: 2018
  6. LOSARTAN. [Concomitant]
     Active Substance: LOSARTAN
     Indication: HYPERTENSION
  7. ASPIRIN. [Concomitant]
     Active Substance: ASPIRIN
     Indication: PRODUCT USED FOR UNKNOWN INDICATION
  8. MODERNA COVID?19 VACCINE [Concomitant]
     Active Substance: CX-024414
     Indication: COVID-19 IMMUNISATION
     Dosage: MODERNA
     Route: 030
     Dates: start: 20210215, end: 20210215
  9. LEVOTHYROXINE. [Concomitant]
     Active Substance: LEVOTHYROXINE
     Indication: THYROID DISORDER
  10. ELIQUIS [Concomitant]
     Active Substance: APIXABAN
     Indication: PRODUCT USED FOR UNKNOWN INDICATION

REACTIONS (1)
  - Dyspnoea [Not Recovered/Not Resolved]

NARRATIVE: CASE EVENT DATE: 202010
